FAERS Safety Report 18410417 (Version 1)
Quarter: 2020Q4

REPORT INFORMATION
  Report Type: Spontaneous
  Country: US (occurrence: US)
  Receive Date: 20201021
  Receipt Date: 20201021
  Transmission Date: 20210114
  Serious: No
  Sender: FDA-Public Use
  Company Number: US-ELI_LILLY_AND_COMPANY-US202006008594

PATIENT

DRUGS (1)
  1. EMGALITY [Suspect]
     Active Substance: GALCANEZUMAB-GNLM
     Indication: PRODUCT USED FOR UNKNOWN INDICATION
     Dosage: 1 DOSAGE FORM, MONTHLY (1/M)
     Route: 065

REACTIONS (7)
  - Insomnia [Unknown]
  - Pain [Unknown]
  - Chest pain [Unknown]
  - Rash [Unknown]
  - Pain of skin [Unknown]
  - Hypoaesthesia [Unknown]
  - Anxiety [Unknown]
